FAERS Safety Report 9846757 (Version 1)
Quarter: 2014Q1

REPORT INFORMATION
  Report Type: Spontaneous
  Country: US (occurrence: US)
  Receive Date: 20140127
  Receipt Date: 20140127
  Transmission Date: 20141002
  Serious: No
  Sender: FDA-Public Use
  Company Number: US-MYLANLABS-2013S1022400

PATIENT
  Age: 54 Year
  Sex: Male
  Weight: 120.2 kg

DRUGS (4)
  1. ACARBOSE TABLETS [Suspect]
     Indication: DIABETES MELLITUS
     Route: 048
     Dates: start: 20130824
  2. GLUCOPHAGE [Concomitant]
     Indication: DIABETES MELLITUS
     Dosage: 2 QAM, 2QHS
     Route: 048
  3. VYTORIN [Concomitant]
  4. LISINOPRIL [Concomitant]

REACTIONS (4)
  - Abdominal pain [Not Recovered/Not Resolved]
  - Flatulence [Not Recovered/Not Resolved]
  - Dysgeusia [Not Recovered/Not Resolved]
  - Blood glucose increased [Not Recovered/Not Resolved]
